FAERS Safety Report 19553237 (Version 1)
Quarter: 2021Q3

REPORT INFORMATION
  Report Type: Spontaneous
  Country: US (occurrence: US)
  Receive Date: 20210714
  Receipt Date: 20210714
  Transmission Date: 20211014
  Serious: No
  Sender: FDA-Public Use
  Company Number: US-SA-2021SA228731

PATIENT
  Sex: Female

DRUGS (3)
  1. ADALIMUMAB ADAZ [Suspect]
     Active Substance: ADALIMUMAB-ADAZ
  2. DUPIXENT [Suspect]
     Active Substance: DUPILUMAB
     Indication: ASTHMA
     Dosage: STRENGTH 150MG/ML, QOW
     Route: 058
     Dates: start: 202002
  3. DUPIXENT [Suspect]
     Active Substance: DUPILUMAB
     Dosage: STRENGTH 150MG/ML, QOW
     Route: 058

REACTIONS (1)
  - Alopecia [Unknown]
